FAERS Safety Report 10779828 (Version 1)
Quarter: 2015Q1

REPORT INFORMATION
  Report Type: Spontaneous
  Country: GB (occurrence: None)
  Receive Date: 20150206
  Receipt Date: 20150206
  Transmission Date: 20150721
  Serious: Yes (Life-Threatening, Hospitalization)
  Sender: FDA-Public Use
  Company Number: BD-2015-0061

PATIENT

DRUGS (2)
  1. MIDAZOLAM [Suspect]
     Active Substance: MIDAZOLAM\MIDAZOLAM HYDROCHLORIDE
     Indication: SEDATIVE THERAPY
     Dosage: 200 UG/KG, LOADING DOSE, INTRAVENOUS
     Route: 042
  2. MORPHINE [Concomitant]
     Active Substance: MORPHINE

REACTIONS (2)
  - Endotracheal intubation complication [None]
  - Pneumothorax [None]

NARRATIVE: CASE EVENT DATE: 20110728
